FAERS Safety Report 7024639-2 (Version None)
Quarter: 2010Q4

REPORT INFORMATION
  Report Type: 
  Country: None (occurrence: None)
  Receive Date: 20101001
  Receipt Date: 20100924
  Transmission Date: 20110411
  Serious: Yes (Hospitalization)
  Sender: FDA-Public Use
  Company Number: GB-JNJFOC-20100500999

PATIENT
  Sex: Female

DRUGS (1)
  1. PANCREASE HL [Suspect]
     Indication: CYSTIC FIBROSIS
     Route: 048

REACTIONS (9)
  - ASTHENIA [None]
  - CHEST DISCOMFORT [None]
  - DECREASED APPETITE [None]
  - DIABETES MELLITUS INADEQUATE CONTROL [None]
  - DRUG INEFFECTIVE [None]
  - GASTROINTESTINAL DISORDER [None]
  - MOOD SWINGS [None]
  - PAIN [None]
  - WEIGHT DECREASED [None]
